FAERS Safety Report 5177399-4 (Version None)
Quarter: 2006Q4

REPORT INFORMATION
  Report Type: 
  Country: None (occurrence: None)
  Receive Date: 20061207
  Receipt Date: 20061129
  Transmission Date: 20070319
  Serious: Yes (Death, Hospitalization)
  Sender: FDA-Public Use
  Company Number: 2006018248

PATIENT
  Age: 77 Year
  Sex: Female

DRUGS (10)
  1. LIPITOR [Suspect]
     Indication: BLOOD CHOLESTEROL INCREASED
     Dosage: 20 MG (20 MG, 1 IN 1 D), ORAL
     Route: 048
     Dates: start: 20051216, end: 20060115
  2. LIPITOR [Suspect]
     Indication: CEREBROVASCULAR DISORDER
     Dosage: 20 MG (20 MG, 1 IN 1 D), ORAL
     Route: 048
     Dates: start: 20051216, end: 20060115
  3. PLAVIX [Concomitant]
  4. PANTOPRAZOLE SODIUM [Concomitant]
  5. CENTYL K (BENDROFLUMETHIAZIDE, POTASSIUM CHLORIDE) [Concomitant]
  6. MESULID (NIMESULIDE) [Concomitant]
  7. ATENOGEN (ATENOLOL) [Concomitant]
  8. AMLODIPINE [Concomitant]
  9. OROVITE (ASCORBIC ACID, NICOTINAMIDE, PYRIDOXINE HYDROCHLORIDE, RIBOFL [Concomitant]
  10. THIAMINE (THIAMINE) [Concomitant]

REACTIONS (10)
  - CEREBRAL ISCHAEMIA [None]
  - DIALYSIS [None]
  - GASTRIC ULCER [None]
  - HEPATIC CYST [None]
  - HEPATIC STEATOSIS [None]
  - INTRACARDIAC THROMBUS [None]
  - LIVER DISORDER [None]
  - PANCREATIC CYST [None]
  - RENAL FAILURE ACUTE [None]
  - RHABDOMYOLYSIS [None]
